FAERS Safety Report 20603112 (Version 1)
Quarter: 2022Q1

REPORT INFORMATION
  Report Type: Spontaneous
  Country: MY (occurrence: MY)
  Receive Date: 20220316
  Receipt Date: 20220316
  Transmission Date: 20220423
  Serious: Yes (Hospitalization, Other)
  Sender: FDA-Public Use
  Company Number: MY-LUPIN PHARMACEUTICALS INC.-2022-03589

PATIENT
  Age: 75 Year
  Sex: Female

DRUGS (6)
  1. CALCIUM [Suspect]
     Active Substance: CALCIUM
     Indication: Mineral supplementation
     Dosage: 1.5 GRAM, BID, CALCIUM CARBONATE
     Route: 065
  2. CALCIUM [Suspect]
     Active Substance: CALCIUM
     Indication: Hypocalcaemia
     Dosage: 1.2 GRAM, TID, CALCIUM LACTATE
     Route: 065
  3. HYDROCHLOROTHIAZIDE [Suspect]
     Active Substance: HYDROCHLOROTHIAZIDE
     Indication: Drug therapy
     Dosage: 12.5 MG, BID
     Route: 065
  4. AMLODIPINE [Concomitant]
     Active Substance: AMLODIPINE BESYLATE
     Indication: Drug therapy
     Dosage: 10 MG, QD
     Route: 065
  5. CALCITRIOL [Concomitant]
     Active Substance: CALCITRIOL
     Indication: Vitamin supplementation
     Dosage: 0.5 MICROGRAM, BID
     Route: 065
  6. LEVOTHYROXINE [Concomitant]
     Active Substance: LEVOTHYROXINE
     Indication: Hormone therapy
     Dosage: 100 MICROGRAM, QD
     Route: 065

REACTIONS (5)
  - Milk-alkali syndrome [Recovered/Resolved]
  - Hypercalcaemia [Recovered/Resolved]
  - Sensory disturbance [Recovering/Resolving]
  - Ventricular extrasystoles [Recovered/Resolved]
  - Renal impairment [Unknown]
